FAERS Safety Report 5999911-5 (Version None)
Quarter: 2008Q4

REPORT INFORMATION
  Report Type: 
  Country: None (occurrence: None)
  Receive Date: 20081215
  Receipt Date: 20081204
  Transmission Date: 20090506
  Serious: Yes (Disabling, Other)
  Sender: FDA-Public Use
  Company Number: PHBS2008US06589

PATIENT
  Sex: Male

DRUGS (2)
  1. PAMIDRONATE DISODIUM [Suspect]
     Indication: EPIDERMOLYSIS BULLOSA
  2. MULTIVITAMINS, COMBINATIONS [Suspect]

REACTIONS (4)
  - BACK PAIN [None]
  - BONE DENSITY DECREASED [None]
  - COMPRESSION FRACTURE [None]
  - DISEASE PROGRESSION [None]
